FAERS Safety Report 18728923 (Version 1)
Quarter: 2021Q1

REPORT INFORMATION
  Report Type: Spontaneous
  Country: US (occurrence: US)
  Receive Date: 20210112
  Receipt Date: 20210112
  Transmission Date: 20210419
  Serious: Yes (Death, Hospitalization)
  Sender: FDA-Public Use
  Company Number: US-PFIZER INC-2021014249

PATIENT
  Age: 46 Year
  Sex: Male

DRUGS (3)
  1. ETHYLENE GLYCOL [Suspect]
     Active Substance: ETHYLENE GLYCOL
     Dosage: UNK (INGST) ANTIFREEZE
     Route: 048
  2. AMLODIPINE BESILATE [Suspect]
     Active Substance: AMLODIPINE BESYLATE
     Dosage: UNK(INGST)
     Route: 048
  3. ALPRAZOLAM. [Suspect]
     Active Substance: ALPRAZOLAM
     Dosage: UNK(INGST)
     Route: 048

REACTIONS (1)
  - Suspected suicide [Fatal]

NARRATIVE: CASE EVENT DATE: 2019
